FAERS Safety Report 7245884-7 (Version None)
Quarter: 2011Q1

REPORT INFORMATION
  Report Type: 
  Country: None (occurrence: None)
  Receive Date: 20110126
  Receipt Date: 20110113
  Transmission Date: 20110831
  Serious: Yes (Other)
  Sender: FDA-Public Use
  Company Number: US-ELI_LILLY_AND_COMPANY-US200910005105

PATIENT
  Sex: Female
  Weight: 122 kg

DRUGS (8)
  1. EFFEXOR [Concomitant]
     Dates: start: 19970101, end: 20070101
  2. ZYPREXA [Suspect]
     Dosage: 1 D/F, UNK
     Dates: start: 19990816, end: 20070101
  3. ZOLOFT [Concomitant]
     Dates: start: 20010101, end: 20080101
  4. CONTRACEPTIVES [Concomitant]
  5. ABILIFY [Concomitant]
     Dates: start: 20070101
  6. HALDOL [Concomitant]
     Dates: start: 20040101
  7. PROZAC [Concomitant]
     Dates: start: 19970101
  8. ZYPREXA [Suspect]
     Dosage: 30 MG, UNK

REACTIONS (9)
  - VENTRICULAR HYPOKINESIA [None]
  - OVERDOSE [None]
  - OBESITY [None]
  - HEADACHE [None]
  - CONSTIPATION [None]
  - DIABETES MELLITUS [None]
  - BLOOD CHOLESTEROL INCREASED [None]
  - BLOOD TRIGLYCERIDES INCREASED [None]
  - WEIGHT INCREASED [None]
